FAERS Safety Report 12566347 (Version 1)
Quarter: 2016Q3

REPORT INFORMATION
  Report Type: Spontaneous
  Country: US (occurrence: US)
  Receive Date: 20160718
  Receipt Date: 20160718
  Transmission Date: 20161109
  Serious: No
  Sender: FDA-Public Use
  Company Number: US-APOTEX-2016AP009211

PATIENT
  Sex: Female

DRUGS (2)
  1. MOMETASONE FUROATE NASAL SPRAY [Suspect]
     Active Substance: MOMETASONE FUROATE
     Dosage: 1 SPRAY IN EACH NOSTRIL AT DAY AND NIGHT
     Route: 045
  2. MOMETASONE FUROATE NASAL SPRAY [Suspect]
     Active Substance: MOMETASONE FUROATE
     Indication: PRODUCT USED FOR UNKNOWN INDICATION
     Dosage: 2 SPRAYS IN EACH NOSTRIL AT DAY AND NIGHT
     Route: 045

REACTIONS (3)
  - Intentional product use issue [Unknown]
  - Burning sensation [Unknown]
  - Feeling abnormal [Unknown]
